FAERS Safety Report 25690994 (Version 1)
Quarter: 2025Q3

REPORT INFORMATION
  Report Type: Spontaneous
  Country: GB (occurrence: GB)
  Receive Date: 20250818
  Receipt Date: 20250818
  Transmission Date: 20251020
  Serious: Yes (Other)
  Sender: MACLEODS
  Company Number: GB-MACLEODS PHARMA-2012-34771-119

PATIENT

DRUGS (1)
  1. SILDENAFIL [Suspect]
     Active Substance: SILDENAFIL
     Indication: Erectile dysfunction
     Route: 065

REACTIONS (4)
  - Visual field defect [Not Recovered/Not Resolved]
  - Intentional overdose [Unknown]
  - Chromatopsia [Recovered/Resolved]
  - Vision blurred [Recovered/Resolved]
